FAERS Safety Report 5527275-X (Version None)
Quarter: 2007Q4

REPORT INFORMATION
  Report Type: 
  Country: None (occurrence: None)
  Receive Date: 20071128
  Receipt Date: 20071126
  Transmission Date: 20080405
  Serious: Yes (Other)
  Sender: FDA-Public Use
  Company Number: A0695876A

PATIENT
  Age: 60 Year
  Sex: Female
  Weight: 107 kg

DRUGS (16)
  1. WELLBUTRIN SR [Suspect]
     Indication: DRUG USE FOR UNKNOWN INDICATION
     Dosage: 150MG PER DAY
     Route: 048
     Dates: start: 20070830, end: 20070925
  2. POTASSIUM CHLORIDE [Concomitant]
     Dosage: 1200MG TWICE PER DAY
     Dates: start: 20030101
  3. TYLENOL [Concomitant]
     Dosage: 650MG FOUR TIMES PER DAY
     Dates: start: 20030101
  4. DIVALPROEX SODIUM [Concomitant]
     Dosage: 750MG THREE TIMES PER DAY
     Dates: start: 20030101
  5. LASIX [Concomitant]
     Dosage: 40MG PER DAY
     Dates: start: 20030101
  6. ATIVAN [Concomitant]
     Dosage: 1MG AT NIGHT
     Dates: start: 20030101
  7. RABEPRAZOLE SODIUM [Concomitant]
     Dosage: 20MG TWICE PER DAY
     Dates: start: 20030101
  8. CACO3 [Concomitant]
     Dosage: 1250MG TWICE PER DAY
     Dates: start: 20030101
  9. DOMPERIDONE [Concomitant]
     Dosage: 10MG THREE TIMES PER DAY
     Dates: start: 20030101
  10. LEVOTHYROXINE SODIUM [Concomitant]
     Dosage: 75MG PER DAY
     Dates: start: 20030101
  11. CLONAZEPAM [Concomitant]
     Dosage: .25MG AT NIGHT
     Dates: start: 20030101
  12. MAGNESIUM GLUCOHEPTONATE [Concomitant]
     Dosage: 20ML FOUR TIMES PER DAY
     Dates: start: 20030101
  13. BEANO [Concomitant]
     Dates: start: 20030101
  14. VITAMIN D [Concomitant]
     Dosage: 1000UNIT PER DAY
  15. CLOTRIMAZOLE [Concomitant]
     Route: 061
     Dates: start: 20030101
  16. BETAMETHASON 0.1% [Concomitant]
     Route: 061
     Dates: start: 20030101

REACTIONS (4)
  - BLISTER [None]
  - PRURITUS [None]
  - RASH [None]
  - SKIN EXFOLIATION [None]
